FAERS Safety Report 6271159-9 (Version None)
Quarter: 2009Q3

REPORT INFORMATION
  Report Type: 
  Country: None (occurrence: None)
  Receive Date: 20090717
  Receipt Date: 20071005
  Transmission Date: 20100115
  Serious: Yes (Other)
  Sender: FDA-Public Use
  Company Number: US-ASTRAZENECA-2006UW26119

PATIENT
  Age: 55 Year
  Sex: Female
  Weight: 65.8 kg

DRUGS (9)
  1. SEROQUEL [Suspect]
     Indication: SCHIZOPHRENIA
     Route: 048
     Dates: start: 19970101, end: 19980301
  2. SEROQUEL [Suspect]
     Indication: BIPOLAR DISORDER
     Route: 048
     Dates: start: 19970101, end: 19980301
  3. SEROQUEL [Suspect]
     Indication: DEPRESSION
     Route: 048
     Dates: start: 19970101, end: 19980301
  4. AMARYL [Concomitant]
     Dosage: 1-2 MG
     Dates: start: 20030806
  5. SYNTHROID [Concomitant]
     Dates: start: 20030806
  6. ATACAND [Concomitant]
     Dates: start: 20030806
  7. BIAXIN XL [Concomitant]
     Dates: start: 20031128
  8. COMBIVENT [Concomitant]
     Dates: start: 20031128
  9. ZETIA [Concomitant]
     Dates: start: 20060127

REACTIONS (3)
  - DIABETES MELLITUS [None]
  - NEUROPATHY PERIPHERAL [None]
  - TYPE 2 DIABETES MELLITUS [None]
